FAERS Safety Report 11180154 (Version 1)
Quarter: 2015Q2

REPORT INFORMATION
  Report Type: Spontaneous
  Country: US (occurrence: US)
  Receive Date: 20150611
  Receipt Date: 20150611
  Transmission Date: 20150821
  Serious: Yes (Other)
  Sender: FDA-Public Use
  Company Number: US-AMGEN-USASP2015056236

PATIENT
  Age: 46 Year
  Sex: Female

DRUGS (15)
  1. PSEUDAFED [Concomitant]
  2. ZOVIRAX [Concomitant]
     Active Substance: ACYCLOVIR
     Dosage: UNK
  3. ZYRTEC [Concomitant]
     Active Substance: CETIRIZINE HYDROCHLORIDE
  4. PENTOXIFYLLINE. [Concomitant]
     Active Substance: PENTOXIFYLLINE
  5. ENBREL [Suspect]
     Active Substance: ETANERCEPT
     Indication: NECROBIOSIS LIPOIDICA DIABETICORUM
     Dosage: 50 MG, QWK
     Route: 058
     Dates: start: 2009
  6. MAGNESIUM [Concomitant]
     Active Substance: MAGNESIUM
  7. METOPROLOL [Concomitant]
     Active Substance: METOPROLOL
  8. VITAMIN D                          /00107901/ [Concomitant]
     Active Substance: ERGOCALCIFEROL
  9. OMEPRAZOLE. [Concomitant]
     Active Substance: OMEPRAZOLE
  10. EXCEDRIN [Concomitant]
     Active Substance: ACETAMINOPHEN\ASPIRIN\CAFFEINE
     Dosage: UNK
  11. KRILL OIL [Concomitant]
     Active Substance: DIETARY SUPPLEMENT
  12. NIACIN. [Concomitant]
     Active Substance: NIACIN
  13. SIMVASTATIN. [Concomitant]
     Active Substance: SIMVASTATIN
  14. NASAL DECONGESTANT                 /00005601/ [Concomitant]
  15. POTASSIUM GLUCONATE [Concomitant]
     Active Substance: POTASSIUM GLUCONATE

REACTIONS (6)
  - Cholecystectomy [Recovered/Resolved]
  - Wound [Recovered/Resolved]
  - Off label use [Unknown]
  - Herpes zoster [Unknown]
  - Fall [Recovered/Resolved]
  - Pneumonia [Unknown]

NARRATIVE: CASE EVENT DATE: 2009
